FAERS Safety Report 4849804-1 (Version None)
Quarter: 2005Q4

REPORT INFORMATION
  Report Type: 
  Country: None (occurrence: None)
  Receive Date: 20051209
  Receipt Date: 20051104
  Transmission Date: 20060501
  Serious: Yes (Hospitalization, Disabling)
  Sender: FDA-Public Use
  Company Number: US-MERCK-0511USA00848

PATIENT
  Age: 58 Year
  Sex: Male
  Weight: 86 kg

DRUGS (2)
  1. VIOXX [Suspect]
     Indication: ARTHRITIS
     Route: 048
     Dates: start: 20000101, end: 20000101
  2. VIOXX [Suspect]
     Indication: BACK PAIN
     Route: 048
     Dates: start: 20000101, end: 20000101

REACTIONS (6)
  - CARDIAC DISORDER [None]
  - DEPRESSION [None]
  - EYE DISORDER [None]
  - MYOCARDIAL INFARCTION [None]
  - OVERDOSE [None]
  - VISUAL DISTURBANCE [None]
